FAERS Safety Report 17401680 (Version 1)
Quarter: 2020Q1

REPORT INFORMATION
  Report Type: Spontaneous
  Country: US (occurrence: US)
  Receive Date: 20200209
  Receipt Date: 20200209
  Transmission Date: 20200409
  Serious: Yes (Hospitalization, Disabling, Other)
  Sender: FDA-Public Use
  Company Number: None

PATIENT
  Age: 59 Year
  Sex: Female
  Weight: 56.25 kg

DRUGS (4)
  1. CIPROFLOXACIN (GENERIC FOR CIPRO) [Suspect]
     Active Substance: CIPROFLOXACIN HYDROCHLORIDE
     Indication: LOCALISED INFECTION
     Dosage: ?          QUANTITY:20 TABLET(S);?
     Route: 048
     Dates: start: 20200110, end: 20200119
  2. NAPROXEN. [Concomitant]
     Active Substance: NAPROXEN
     Dates: end: 20200115
  3. LISINOPRIL. [Concomitant]
     Active Substance: LISINOPRIL
  4. CIPROFLOXACIN (GENERIC FOR CIPRO) [Suspect]
     Active Substance: CIPROFLOXACIN HYDROCHLORIDE
     Indication: NAIL INFECTION
     Dosage: ?          QUANTITY:20 TABLET(S);?
     Route: 048
     Dates: start: 20200110, end: 20200119

REACTIONS (8)
  - Disease recurrence [None]
  - Sciatica [None]
  - Gait disturbance [None]
  - Piriformis syndrome [None]
  - Therapy cessation [None]
  - Condition aggravated [None]
  - Cellulitis [None]
  - Muscle spasms [None]

NARRATIVE: CASE EVENT DATE: 20200115
